FAERS Safety Report 4888547-5 (Version None)
Quarter: 2005Q4

REPORT INFORMATION
  Report Type: 
  Country: None (occurrence: None)
  Receive Date: 20051215
  Receipt Date: 20050421
  Transmission Date: 20060501
  Serious: Yes (Other)
  Sender: FDA-Public Use
  Company Number: 2005064127

PATIENT
  Age: 80 Year
  Sex: Male
  Weight: 72.5755 kg

DRUGS (5)
  1. BEXTRA [Suspect]
     Indication: ARTHRITIS
     Dosage: 20 MG (20 MG, 1 IN 1 D), ORAL
     Route: 048
     Dates: start: 20040101
  2. ENALAPRIL MALEATE (ENALAPRIL) [Concomitant]
  3. EZETIMIBE (EZETIMIBE) [Concomitant]
  4. METOPROLOL (METOPROLOL) [Concomitant]
  5. ALENDRONATE SODIUM (ALENDRONATRE SODIUM) [Concomitant]

REACTIONS (2)
  - BACK PAIN [None]
  - BODY HEIGHT INCREASED [None]
